FAERS Safety Report 10530758 (Version 1)
Quarter: 2014Q4

REPORT INFORMATION
  Report Type: Spontaneous
  Country: EG (occurrence: None)
  Receive Date: 20141017
  Receipt Date: 20141017
  Transmission Date: 20150528
  Serious: Yes (Hospitalization, Other)
  Sender: FDA-Public Use
  Company Number: 2014CVI00031

PATIENT
  Age: 47 Year
  Sex: Female

DRUGS (12)
  1. MERONEM (MERONEM) [Concomitant]
  2. DIFLUCAN [Concomitant]
     Active Substance: FLUCONAZOLE
  3. DEXAMETHASONE. [Suspect]
     Active Substance: DEXAMETHASONE
     Indication: HYPERTENSIVE ENCEPHALOPATHY
     Route: 042
     Dates: start: 20130527
  4. VINCRISTINE SULFATE (VINCRISTINE SULFATE) [Suspect]
     Active Substance: VINCRISTINE SULFATE
     Route: 042
     Dates: start: 20130527
  5. CYCLOPHOSPHAMIDE (CYCLOPHOSPHAMIDE) [Suspect]
     Active Substance: CYCLOPHOSPHAMIDE
     Route: 042
  6. LASIX [Concomitant]
     Active Substance: FUROSEMIDE
  7. ONDANSETRON HYDROCHLORIDE (ONDANSETRON HYDROCHLORIDE) [Suspect]
     Active Substance: ONDANSETRON HYDROCHLORIDE
     Route: 042
     Dates: start: 20130527
  8. RITUXIMAB (RITUXIMAB) [Suspect]
     Active Substance: RITUXIMAB
     Route: 042
     Dates: start: 20130527
  9. PREDNISONE. [Suspect]
     Active Substance: PREDNISONE
     Route: 048
     Dates: start: 20130527
  10. ZANTAC [Suspect]
     Active Substance: RANITIDINE HYDROCHLORIDE
     Route: 042
     Dates: start: 20010527
  11. DOXORUBICIN HYDROCHLORIDE (DOXORUBICIN HYDROCHLORIDE) [Suspect]
     Active Substance: DOXORUBICIN HYDROCHLORIDE
     Route: 042
     Dates: start: 20130527
  12. PHENIRAMINE [Suspect]
     Active Substance: PHENIRAMINE
     Route: 042
     Dates: start: 20130527

REACTIONS (6)
  - Device related infection [None]
  - Sepsis [None]
  - Hypertensive encephalopathy [None]
  - Febrile neutropenia [None]
  - Anaemia [None]
  - Haemoglobin decreased [None]

NARRATIVE: CASE EVENT DATE: 20130614
